FAERS Safety Report 5282795-0 (Version None)
Quarter: 2007Q2

REPORT INFORMATION
  Report Type: 
  Country: None (occurrence: None)
  Receive Date: 20070402
  Receipt Date: 20070320
  Transmission Date: 20071010
  Serious: Yes (Life-Threatening, Other)
  Sender: FDA-Public Use
  Company Number: US-ELI_LILLY_AND_COMPANY-US200703002693

PATIENT
  Age: 31 Year
  Sex: Female

DRUGS (2)
  1. ZYPREXA [Suspect]
     Indication: AGITATION
     Dosage: 10 MG, UNK
     Route: 030
     Dates: start: 20070307, end: 20070307
  2. ATIVAN [Concomitant]
     Indication: AGITATION
     Dosage: 2 MG, UNK
     Route: 030
     Dates: start: 20070307, end: 20070307

REACTIONS (1)
  - RESPIRATORY ARREST [None]
